FAERS Safety Report 9710286 (Version 2)
Quarter: 2013Q4

REPORT INFORMATION
  Report Type: Spontaneous
  Country: US (occurrence: US)
  Receive Date: 20131126
  Receipt Date: 20131126
  Transmission Date: 20140711
  Serious: No
  Sender: FDA-Public Use
  Company Number: US-BRISTOL-MYERS SQUIBB COMPANY-18760066

PATIENT
  Age: 64 Year
  Sex: Female
  Weight: 136.05 kg

DRUGS (16)
  1. BYETTA PEN DISPOSABLE [Suspect]
     Route: 058
     Dates: start: 2009
  2. LANTUS [Concomitant]
  3. GLIPIZIDE [Concomitant]
  4. PIOGLITAZONE HCL [Concomitant]
  5. AMLODIPINE [Concomitant]
  6. ATORVASTATIN [Concomitant]
  7. METFORMIN [Concomitant]
  8. LEVOTHYROXINE [Concomitant]
  9. TOVIAZ [Concomitant]
  10. LISINOPRIL [Concomitant]
  11. ATENOLOL [Concomitant]
  12. HYDROCHLOROTHIAZIDE [Concomitant]
  13. VENTOLIN [Concomitant]
  14. FLUTICASONE [Concomitant]
  15. NAPROSYN [Concomitant]
  16. OMEPRAZOLE [Concomitant]

REACTIONS (1)
  - Laryngitis [Not Recovered/Not Resolved]
